FAERS Safety Report 13050713 (Version 2)
Quarter: 2017Q1

REPORT INFORMATION
  Report Type: Spontaneous
  Country: US (occurrence: US)
  Receive Date: 20161221
  Receipt Date: 20170113
  Transmission Date: 20170428
  Serious: Yes (Life-Threatening, Hospitalization, Other)
  Sender: FDA-Public Use
  Company Number: US-PFIZER INC-2016550879

PATIENT
  Age: 56 Year
  Sex: Female

DRUGS (2)
  1. IRBESARTAN. [Interacting]
     Active Substance: IRBESARTAN
     Dosage: UNK
  2. SULFAMETHOXAZOLE/TRIMETHOPRIM [Suspect]
     Active Substance: SULFAMETHOXAZOLE\TRIMETHOPRIM
     Indication: CELLULITIS
     Dosage: UNK

REACTIONS (6)
  - Hypotension [Recovered/Resolved]
  - Atrioventricular block first degree [Recovered/Resolved]
  - Sinus bradycardia [Recovered/Resolved]
  - Drug interaction [Recovered/Resolved]
  - Hyperkalaemia [Recovered/Resolved]
  - Renal impairment [Recovered/Resolved]
